FAERS Safety Report 6718317-4 (Version None)
Quarter: 2010Q2

REPORT INFORMATION
  Report Type: 
  Country: None (occurrence: None)
  Receive Date: 20100510
  Receipt Date: 20100426
  Transmission Date: 20101027
  Serious: Yes (Life-Threatening, Hospitalization)
  Sender: FDA-Public Use
  Company Number: PL-MYLANLABS-2010S1007083

PATIENT
  Age: 17 Year
  Sex: Female

DRUGS (4)
  1. AMLODIPINE [Suspect]
     Indication: SUICIDE ATTEMPT
     Route: 048
  2. METOPROLOL [Suspect]
     Indication: SUICIDE ATTEMPT
     Route: 048
  3. VERAPAMIL [Suspect]
     Indication: SUICIDE ATTEMPT
     Route: 048
  4. IBUPROFEN [Suspect]
     Indication: SUICIDE ATTEMPT
     Route: 048

REACTIONS (8)
  - CARDIOGENIC SHOCK [None]
  - COMA [None]
  - HYPERGLYCAEMIA [None]
  - INTENTIONAL OVERDOSE [None]
  - METABOLIC ACIDOSIS [None]
  - NAUSEA [None]
  - PULMONARY OEDEMA [None]
  - SOMNOLENCE [None]
